FAERS Safety Report 5397250-7 (Version None)
Quarter: 2007Q3

REPORT INFORMATION
  Report Type: 
  Country: None (occurrence: None)
  Receive Date: 20070725
  Receipt Date: 20070713
  Transmission Date: 20080115
  Serious: Yes (Other)
  Sender: FDA-Public Use
  Company Number: US-PFIZER INC-2007059306

PATIENT
  Sex: Female
  Weight: 86.4 kg

DRUGS (15)
  1. CHANTIX [Suspect]
     Indication: SMOKING CESSATION THERAPY
     Route: 048
  2. SERAX [Concomitant]
  3. ZOLOFT [Concomitant]
  4. NEURONTIN [Concomitant]
  5. PRILOSEC [Concomitant]
  6. BUSPAR [Concomitant]
  7. LORCET-HD [Concomitant]
  8. LOTREL [Concomitant]
  9. PLAVIX [Concomitant]
  10. TOPROL-XL [Concomitant]
  11. TRICOR [Concomitant]
  12. LASIX [Concomitant]
  13. POTASSIUM CHLORIDE [Concomitant]
  14. SPIRIVA [Concomitant]
  15. TIOTROPIUM BROMIDE [Concomitant]

REACTIONS (5)
  - BLOOD PRESSURE DECREASED [None]
  - FATIGUE [None]
  - HEADACHE [None]
  - HEART RATE DECREASED [None]
  - NIGHTMARE [None]
